FAERS Safety Report 12329691 (Version 1)
Quarter: 2016Q2

REPORT INFORMATION
  Report Type: Report from Study
  Country: DE (occurrence: DE)
  Receive Date: 20160503
  Receipt Date: 20160503
  Transmission Date: 20160815
  Serious: Yes (Hospitalization)
  Sender: FDA-Public Use
  Company Number: DE-ABBVIE-16K-062-1606784-00

PATIENT
  Age: 55 Year
  Sex: Male

DRUGS (9)
  1. PROCORALAN [Concomitant]
     Active Substance: IVABRADINE
     Indication: PRODUCT USED FOR UNKNOWN INDICATION
  2. ACICLOVIR [Suspect]
     Active Substance: ACYCLOVIR
     Indication: PRODUCT USED FOR UNKNOWN INDICATION
     Dosage: HIGHLY DOSED
     Route: 065
  3. PROTAPHANE [Concomitant]
     Active Substance: INSULIN HUMAN
     Indication: PRODUCT USED FOR UNKNOWN INDICATION
  4. BISOHEXAL [Concomitant]
     Active Substance: BISOPROLOL FUMARATE
     Indication: PRODUCT USED FOR UNKNOWN INDICATION
  5. HUMIRA [Suspect]
     Active Substance: ADALIMUMAB
     Indication: RHEUMATOID ARTHRITIS
     Route: 058
     Dates: start: 20140901, end: 20160412
  6. LOSARTAN PLUS [Concomitant]
     Indication: PRODUCT USED FOR UNKNOWN INDICATION
  7. ACETYLSALICYLIC ACID [Concomitant]
     Active Substance: ASPIRIN
     Indication: PRODUCT USED FOR UNKNOWN INDICATION
  8. MST [Concomitant]
     Active Substance: MORPHINE SULFATE\NALTREXONE HYDROCHLORIDE
     Indication: PRODUCT USED FOR UNKNOWN INDICATION
     Dosage: REDUCED
  9. INEGY [Concomitant]
     Active Substance: EZETIMIBE\SIMVASTATIN
     Indication: PRODUCT USED FOR UNKNOWN INDICATION

REACTIONS (3)
  - Compartment syndrome [Not Recovered/Not Resolved]
  - Acute kidney injury [Not Recovered/Not Resolved]
  - Herpes zoster [Not Recovered/Not Resolved]

NARRATIVE: CASE EVENT DATE: 201603
